FAERS Safety Report 9922137 (Version 1)
Quarter: 2014Q1

REPORT INFORMATION
  Report Type: Spontaneous
  Country: US (occurrence: US)
  Receive Date: 20140225
  Receipt Date: 20140225
  Transmission Date: 20141002
  Serious: No
  Sender: FDA-Public Use
  Company Number: US-TEVA-461284USA

PATIENT
  Sex: Male

DRUGS (1)
  1. TRISENOX [Suspect]
     Dosage: ^152^
     Dates: start: 20140109

REACTIONS (2)
  - Rash [Not Recovered/Not Resolved]
  - Scrotal pain [Not Recovered/Not Resolved]
